FAERS Safety Report 23815624 (Version 1)
Quarter: 2024Q2

REPORT INFORMATION
  Report Type: Spontaneous
  Country: ES (occurrence: ES)
  Receive Date: 20240503
  Receipt Date: 20240503
  Transmission Date: 20240715
  Serious: Yes (Hospitalization)
  Sender: FDA-Public Use
  Company Number: ES-MYLANLABS-2024M1040359

PATIENT
  Age: 16 Year
  Sex: Female

DRUGS (5)
  1. SERTRALINE [Suspect]
     Active Substance: SERTRALINE HYDROCHLORIDE
     Indication: Trisomy 21
     Dosage: 100 MILLIGRAM, QD
     Route: 048
     Dates: start: 2021
  2. ARIPIPRAZOLE [Suspect]
     Active Substance: ARIPIPRAZOLE
     Indication: Trisomy 21
     Dosage: 5 MILLIGRAM, QD
     Route: 048
     Dates: start: 2021
  3. FLUOXETINE [Concomitant]
     Active Substance: FLUOXETINE HYDROCHLORIDE
     Indication: Trisomy 21
     Dosage: 40 MILLIGRAM, QD
     Route: 048
     Dates: start: 2021
  4. LORAZEPAM [Concomitant]
     Active Substance: LORAZEPAM
     Indication: Trisomy 21
     Dosage: 2 MILLIGRAM, QD
     Route: 048
     Dates: start: 2021
  5. LORAZEPAM [Concomitant]
     Active Substance: LORAZEPAM
     Dosage: 15 MILLIGRAM, QD
     Route: 048
     Dates: start: 2021

REACTIONS (7)
  - Therapy non-responder [Unknown]
  - Condition aggravated [Unknown]
  - Catatonia [Unknown]
  - Extrapyramidal disorder [Unknown]
  - Hyperhidrosis [Unknown]
  - Hypersomnia [Unknown]
  - Off label use [Unknown]

NARRATIVE: CASE EVENT DATE: 20230101
